FAERS Safety Report 8817404 (Version 1)
Quarter: 2012Q4

REPORT INFORMATION
  Report Type: 
  Country: DK (occurrence: CH)
  Receive Date: 20121004
  Receipt Date: 20121004
  Transmission Date: 20130627
  Serious: Yes (Hospitalization)
  Sender: FDA-Public Use
  Company Number: CH-FRI-1000039070

PATIENT
  Sex: Male
  Weight: 79 kg

DRUGS (6)
  1. CITALOPRAM [Suspect]
     Indication: DEPRESSION
     Route: 048
     Dates: start: 2010, end: 20120816
  2. PIRFENIDONE [Suspect]
     Indication: INTERSTITIAL LUNG DISEASE
     Dosage: 1602 mg
     Route: 048
     Dates: start: 20120116
  3. SPORANOX [Suspect]
     Indication: BRONCHOPULMONARY ASPERGILLOSIS
     Dosage: 400 mg
     Route: 048
     Dates: start: 20120502
  4. PREDNISON [Suspect]
     Indication: INTERSTITIAL LUNG DISEASE
     Dosage: 20 mg
     Route: 048
     Dates: start: 201012, end: 2011
  5. PREDNISON [Suspect]
     Dosage: 10 mg
     Route: 048
     Dates: start: 2011
  6. MODURETIC [Suspect]
     Dosage: 20 mg
     Route: 048
     Dates: start: 201111, end: 20120816

REACTIONS (4)
  - Abnormal behaviour [Recovering/Resolving]
  - Confusional state [Recovering/Resolving]
  - Hyponatraemia [Recovering/Resolving]
  - Fungal infection [Unknown]
